FAERS Safety Report 17690019 (Version 1)
Quarter: 2020Q2

REPORT INFORMATION
  Report Type: Spontaneous
  Country: CH (occurrence: CH)
  Receive Date: 20200421
  Receipt Date: 20200421
  Transmission Date: 20200714
  Serious: Yes (Hospitalization)
  Sender: FDA-Public Use
  Company Number: CH-009507513-2004CHE004999

PATIENT
  Age: 72 Year
  Sex: Female
  Weight: 69.5 kg

DRUGS (6)
  1. MINALGIN [Suspect]
     Active Substance: METAMIZOLE
     Indication: PAIN
     Dosage: 2 SEPARATED DOSES
     Route: 048
     Dates: start: 20200211, end: 20200311
  2. FOLIC ACID. [Concomitant]
     Active Substance: FOLIC ACID
     Indication: FOLATE DEFICIENCY
     Dosage: 1 MILLIGRAM, Q24H
     Route: 048
     Dates: start: 20200219
  3. KEYTRUDA [Suspect]
     Active Substance: PEMBROLIZUMAB
     Indication: LUNG NEOPLASM MALIGNANT
     Dosage: 200 MILLIGRAM, Q3W
     Route: 042
     Dates: start: 20200219, end: 20200219
  4. REMERON [Concomitant]
     Active Substance: MIRTAZAPINE
     Indication: MENTAL DISORDER
     Dosage: 30 MILLIGRAM, QD
     Route: 048
     Dates: start: 20200101
  5. ZOLDORM [Concomitant]
     Active Substance: ZOLPIDEM TARTRATE
     Indication: INSOMNIA
     Dosage: 5 MILLIGRAM, Q24H
     Route: 048
     Dates: start: 20200101
  6. EXFORGE [Concomitant]
     Active Substance: AMLODIPINE BESYLATE\VALSARTAN
     Indication: BLOOD PRESSURE MEASUREMENT
     Dosage: UNK, Q24H
     Route: 048
     Dates: start: 20200101

REACTIONS (1)
  - Pancytopenia [Recovering/Resolving]

NARRATIVE: CASE EVENT DATE: 20200303
